FAERS Safety Report 20429898 (Version 1)
Quarter: 2022Q1

REPORT INFORMATION
  Report Type: Report from Study
  Country: FR (occurrence: FR)
  Receive Date: 20220204
  Receipt Date: 20220204
  Transmission Date: 20220423
  Serious: Yes (Hospitalization)
  Sender: FDA-Public Use
  Company Number: FR-SERVIER-S18010957

PATIENT

DRUGS (8)
  1. ONCASPAR [Suspect]
     Active Substance: PEGASPARGASE
     Indication: Acute lymphocytic leukaemia
     Dosage: 1350 IU ON D4 OF EACH CYCLE
     Route: 042
     Dates: start: 20181109, end: 20181109
  2. DOXORUBICIN [Suspect]
     Active Substance: DOXORUBICIN
     Indication: Acute lymphocytic leukaemia
     Dosage: 32 MG ON D1, D8, D15 AND D22 OF EACH CYCLE
     Route: 042
     Dates: start: 20181106
  3. VINCRISTINE [Suspect]
     Active Substance: VINCRISTINE
     Indication: Acute lymphocytic leukaemia
     Dosage: 1.6 MG ON D1, D8, D15 AND D22 OF EACH CYCLE
     Route: 042
     Dates: start: 20181106
  4. METHOTREXATE [Suspect]
     Active Substance: METHOTREXATE
     Indication: Acute lymphocytic leukaemia
     Dosage: 15 MG ON D4 AND D31 OF EACH CYCCLE
     Route: 037
     Dates: start: 20181109
  5. DEXAMETHASONE [Suspect]
     Active Substance: DEXAMETHASONE
     Indication: Acute lymphocytic leukaemia
     Dosage: 10 MG ON D1 TO D21 OF EACH CYCLE
     Route: 048
     Dates: start: 20181106
  6. TN UNSPECIFIED [Concomitant]
     Indication: Product used for unknown indication
     Dosage: UNK
  7. TN UNSPECIFIED [Concomitant]
     Indication: Product used for unknown indication
  8. TN UNSPECIFIED [Concomitant]
     Indication: Product used for unknown indication

REACTIONS (1)
  - Septic shock [Recovered/Resolved]

NARRATIVE: CASE EVENT DATE: 20181124
